FAERS Safety Report 6200605-1 (Version None)
Quarter: 2009Q2

REPORT INFORMATION
  Report Type: 
  Country: None (occurrence: None)
  Receive Date: 20090522
  Receipt Date: 20090512
  Transmission Date: 20091009
  Serious: Yes (Hospitalization)
  Sender: FDA-Public Use
  Company Number: US-AMGEN-QUU338330

PATIENT
  Sex: Male
  Weight: 91.7 kg

DRUGS (1)
  1. ENBREL [Suspect]
     Indication: RHEUMATOID ARTHRITIS
     Route: 058
     Dates: start: 20030811

REACTIONS (5)
  - ABDOMINAL PAIN [None]
  - GALLBLADDER OPERATION [None]
  - PERIARTHRITIS [None]
  - PROSTATE INFECTION [None]
  - SINUSITIS [None]
